FAERS Safety Report 15838934 (Version 1)
Quarter: 2019Q1

REPORT INFORMATION
  Report Type: Spontaneous
  Country: CA (occurrence: CA)
  Receive Date: 20190117
  Receipt Date: 20190117
  Transmission Date: 20190417
  Serious: Yes (Other)
  Sender: FDA-Public Use
  Company Number: CA-FRESENIUS KABI-FK201900552

PATIENT
  Age: 68 Year
  Sex: Female
  Weight: 60.38 kg

DRUGS (2)
  1. HALOPERIDOL INJECTION (MANUFACTURER UNKNOWN) [Suspect]
     Active Substance: HALOPERIDOL LACTATE
     Indication: PRODUCT USED FOR UNKNOWN INDICATION
     Route: 065
  2. LORAZEPAM. [Concomitant]
     Active Substance: LORAZEPAM
     Indication: PRODUCT USED FOR UNKNOWN INDICATION
     Route: 065

REACTIONS (9)
  - Dysphonia [Unknown]
  - Hallucination [Unknown]
  - Tremor [Unknown]
  - Amnesia [Unknown]
  - Muscle twitching [Unknown]
  - Restlessness [Unknown]
  - Movement disorder [Unknown]
  - Medication error [Unknown]
  - Memory impairment [Unknown]
